FAERS Safety Report 12455032 (Version 10)
Quarter: 2020Q1

REPORT INFORMATION
  Report Type: Spontaneous
  Country: US (occurrence: US)
  Receive Date: 20160610
  Receipt Date: 20200121
  Transmission Date: 20200409
  Serious: No
  Sender: FDA-Public Use
  Company Number: US-PFIZER INC-2016293345

PATIENT
  Age: 88 Year
  Sex: Female
  Weight: 63 kg

DRUGS (3)
  1. METHOTREXATE. [Concomitant]
     Active Substance: METHOTREXATE
     Dosage: 8 DF, WEEKLY (EVERY FRIDAY)
  2. XELJANZ [Suspect]
     Active Substance: TOFACITINIB CITRATE
     Indication: RHEUMATOID ARTHRITIS
     Dosage: 5 MG, 2X/DAY [ONE IN MORNING ONE AT NIGHT]
  3. XELJANZ [Suspect]
     Active Substance: TOFACITINIB CITRATE
     Indication: HERPES ZOSTER
     Dosage: 5 MG, 2X/DAY [ONE IN MORNING ONE AT NIGHT]

REACTIONS (12)
  - Cough [Unknown]
  - Eating disorder [Unknown]
  - Influenza [Unknown]
  - Rosacea [Not Recovered/Not Resolved]
  - Skin disorder [Unknown]
  - Malaise [Unknown]
  - Nasopharyngitis [Unknown]
  - Insomnia [Unknown]
  - Rash [Unknown]
  - Sinus disorder [Unknown]
  - Arthritis [Unknown]
  - Gait disturbance [Unknown]

NARRATIVE: CASE EVENT DATE: 201912
